FAERS Safety Report 7957386-0 (Version None)
Quarter: 2011Q4

REPORT INFORMATION
  Report Type: 
  Country: None (occurrence: None)
  Receive Date: 20111205
  Receipt Date: 20111201
  Transmission Date: 20120403
  Serious: Yes (Hospitalization, Disabling, Other)
  Sender: FDA-Public Use
  Company Number: US-MERCK-1106USA03848

PATIENT
  Age: 63 Year
  Sex: Female

DRUGS (2)
  1. FOSAMAX [Suspect]
     Indication: BONE LOSS
     Route: 048
     Dates: start: 20040101, end: 20100101
  2. FOSAMAX [Suspect]
     Route: 048
     Dates: end: 20100801

REACTIONS (23)
  - BRONCHIAL HYPERREACTIVITY [None]
  - HYPERSENSITIVITY [None]
  - DIABETES MELLITUS [None]
  - UTERINE DISORDER [None]
  - FEMUR FRACTURE [None]
  - JOINT DISLOCATION [None]
  - UPPER LIMB FRACTURE [None]
  - TONSILLAR DISORDER [None]
  - POLYARTHRITIS [None]
  - APPENDIX DISORDER [None]
  - BLADDER DISORDER [None]
  - FALL [None]
  - ROTATOR CUFF SYNDROME [None]
  - LIGAMENT INJURY [None]
  - GOITRE [None]
  - CHEST PAIN [None]
  - POST PROCEDURAL CONSTIPATION [None]
  - THYROID NEOPLASM [None]
  - ARTHROPATHY [None]
  - INCORRECT DOSE ADMINISTERED [None]
  - ANAEMIA POSTOPERATIVE [None]
  - ESSENTIAL HYPERTENSION [None]
  - DEVICE FAILURE [None]
